FAERS Safety Report 25103193 (Version 1)
Quarter: 2025Q1

REPORT INFORMATION
  Report Type: Spontaneous
  Country: GB (occurrence: GB)
  Receive Date: 20250321
  Receipt Date: 20250321
  Transmission Date: 20250409
  Serious: Yes (Other)
  Sender: RANBAXY
  Company Number: GB-MHRA-MED-202503081810035340-ZYSMW

PATIENT
  Sex: Female

DRUGS (1)
  1. CODEINE [Suspect]
     Active Substance: CODEINE
     Indication: Hepatic pain
     Route: 065
     Dates: end: 20250307

REACTIONS (1)
  - Heat stroke [Recovered/Resolved]

NARRATIVE: CASE EVENT DATE: 20250307
